FAERS Safety Report 11699235 (Version 1)
Quarter: 2015Q4

REPORT INFORMATION
  Report Type: Spontaneous
  Country: US (occurrence: US)
  Receive Date: 20151104
  Receipt Date: 20151104
  Transmission Date: 20160304
  Serious: No
  Sender: FDA-Public Use
  Company Number: US-ANTARES PHARMA, INC.-2015-SPO-MX-0052

PATIENT
  Sex: Female

DRUGS (6)
  1. OTREXUP [Suspect]
     Active Substance: METHOTREXATE
     Indication: MORPHOEA
     Dosage: 10 MG/0.4ML, QWK
  2. FOLIC ACID. [Concomitant]
     Active Substance: FOLIC ACID
  3. IBUPROFEN. [Concomitant]
     Active Substance: IBUPROFEN
  4. TRAMADOL. [Concomitant]
     Active Substance: TRAMADOL
  5. PREDNISONE. [Concomitant]
     Active Substance: PREDNISONE
     Indication: SYSTEMIC LUPUS ERYTHEMATOSUS
  6. TOPAMAX [Concomitant]
     Active Substance: TOPIRAMATE
     Indication: MIGRAINE

REACTIONS (2)
  - Nausea [None]
  - Amnesia [None]
